FAERS Safety Report 20694154 (Version 2)
Quarter: 2022Q2

REPORT INFORMATION
  Report Type: Report from Study
  Country: US (occurrence: US)
  Receive Date: 20220411
  Receipt Date: 20220418
  Transmission Date: 20220721
  Serious: No
  Sender: FDA-Public Use
  Company Number: US-SA-SAC20220407001517

PATIENT
  Age: 50 Year
  Sex: Male

DRUGS (3)
  1. DUPILUMAB [Suspect]
     Active Substance: DUPILUMAB
     Indication: Dermatitis atopic
     Dosage: 600 MG, 1X
     Route: 058
     Dates: start: 20190128, end: 20190128
  2. DUPILUMAB [Suspect]
     Active Substance: DUPILUMAB
     Dosage: 300 MG, QOW
     Route: 058
     Dates: start: 20190204
  3. DUPILUMAB [Suspect]
     Active Substance: DUPILUMAB
     Dosage: 300 UNK; FREQUENCY: OTHER
     Route: 058
     Dates: start: 20220106

REACTIONS (6)
  - Pruritus [Unknown]
  - Rash macular [Unknown]
  - Skin exfoliation [Unknown]
  - Feeling hot [Unknown]
  - Skin tightness [Unknown]
  - Inappropriate schedule of product administration [Unknown]
